FAERS Safety Report 6462556-7 (Version None)
Quarter: 2009Q4

REPORT INFORMATION
  Report Type: 
  Country: None (occurrence: None)
  Receive Date: 20091130
  Receipt Date: 20091120
  Transmission Date: 20100525
  Serious: Yes (Hospitalization, Other)
  Sender: FDA-Public Use
  Company Number: PHHY2009JP49567

PATIENT
  Sex: Female

DRUGS (3)
  1. NEORAL [Suspect]
     Indication: LIVER TRANSPLANT
     Dosage: 1 MG/KG DAILY
     Route: 048
  2. NEORAL [Suspect]
     Dosage: UNK
     Route: 048
  3. PREDNISOLONE [Concomitant]
     Indication: LIVER TRANSPLANT
     Route: 048

REACTIONS (6)
  - B-CELL LYMPHOMA RECURRENT [None]
  - EPSTEIN-BARR VIRUS ASSOCIATED LYMPHOPROLIFERATIVE DISORDER [None]
  - HAEMATOCHEZIA [None]
  - LYMPHOMA [None]
  - PORTAL VEIN THROMBOSIS [None]
  - PYREXIA [None]
